FAERS Safety Report 26123757 (Version 1)
Quarter: 2025Q4

REPORT INFORMATION
  Report Type: Spontaneous
  Country: US (occurrence: US)
  Receive Date: 20251205
  Receipt Date: 20251205
  Transmission Date: 20260117
  Serious: No
  Sender: Haleon PLC
  Company Number: US-HALEON-2277390

PATIENT
  Age: 26 Year
  Sex: Male

DRUGS (2)
  1. ACETAMINOPHEN [Suspect]
     Active Substance: ACETAMINOPHEN
     Indication: Pruritus
  2. IBUPROFEN [Suspect]
     Active Substance: IBUPROFEN
     Indication: Pruritus

REACTIONS (1)
  - Drug ineffective [Unknown]
